FAERS Safety Report 10520824 (Version 2)
Quarter: 2015Q3

REPORT INFORMATION
  Report Type: Spontaneous
  Country: DK (occurrence: DK)
  Receive Date: 20141015
  Receipt Date: 20150911
  Transmission Date: 20151125
  Serious: Yes (Hospitalization)
  Sender: FDA-Public Use
  Company Number: PHHY2014DK133376

PATIENT
  Age: 48 Year
  Sex: Female

DRUGS (9)
  1. SERTRALIN//SERTRALINE HYDROCHLORIDE [Concomitant]
     Indication: ANXIETY
  2. EXEMESTANE. [Concomitant]
     Active Substance: EXEMESTANE
     Indication: PRODUCT USED FOR UNKNOWN INDICATION
     Dosage: 25 MG, QD
     Route: 065
     Dates: start: 201205
  3. BONDRONAT//IBANDRONIC ACID [Suspect]
     Active Substance: IBANDRONIC ACID
     Indication: METASTASES TO BONE
     Dosage: 50 MG, QD
     Route: 048
     Dates: start: 20120501, end: 20130101
  4. XGEVA [Suspect]
     Active Substance: DENOSUMAB
     Indication: METASTASES TO BONE
     Dosage: 120 MG,  EVERY FOURTH WEEK (QMO)
     Route: 058
     Dates: start: 20130911, end: 20140428
  5. ZOMETA [Suspect]
     Active Substance: ZOLEDRONIC ACID
     Indication: METASTASES TO BONE
     Route: 042
     Dates: start: 20130424, end: 20130821
  6. SERTRALIN//SERTRALINE HYDROCHLORIDE [Concomitant]
     Indication: PHOBIA
     Route: 065
  7. MARZINE [Concomitant]
     Active Substance: CYCLIZINE HYDROCHLORIDE
     Indication: DIZZINESS
     Route: 065
     Dates: start: 201208
  8. ZOMETA [Suspect]
     Active Substance: ZOLEDRONIC ACID
     Route: 042
     Dates: start: 20140530, end: 20140601
  9. LETROZOL [Concomitant]
     Active Substance: LETROZOLE
     Indication: PRODUCT USED FOR UNKNOWN INDICATION
     Dosage: 2.5 MG, QD
     Route: 065
     Dates: start: 201210

REACTIONS (4)
  - Sequestrectomy [Recovered/Resolved]
  - Exposed bone in jaw [Unknown]
  - Osteonecrosis of jaw [Recovered/Resolved]
  - Pain in jaw [Unknown]

NARRATIVE: CASE EVENT DATE: 2014
